FAERS Safety Report 8381581-2 (Version None)
Quarter: 2012Q2

REPORT INFORMATION
  Report Type: 
  Country: None (occurrence: None)
  Receive Date: 20120523
  Receipt Date: 20120516
  Transmission Date: 20120825
  Serious: Yes (Other)
  Sender: FDA-Public Use
  Company Number: BR-ABBOTT-12P-020-0936135-00

PATIENT
  Sex: Female
  Weight: 74 kg

DRUGS (9)
  1. HUMIRA [Suspect]
     Indication: RHEUMATOID ARTHRITIS
     Route: 058
     Dates: start: 20110801
  2. CLOPIDOGREL [Concomitant]
     Indication: CARDIAC DISORDER
     Route: 048
  3. METHOTREXATE [Concomitant]
     Indication: RHEUMATOID ARTHRITIS
     Route: 048
     Dates: start: 20110801
  4. SIMVASTATIN [Concomitant]
     Indication: CARDIAC DISORDER
     Route: 048
  5. CLOPIDOGREL [Concomitant]
     Indication: PROPHYLAXIS
  6. SIMVASTATIN [Concomitant]
     Indication: PROPHYLAXIS
  7. METOPROLOL SUCCINATE [Concomitant]
     Indication: PROPHYLAXIS
  8. ASPIRIN [Concomitant]
     Indication: ANTICOAGULANT THERAPY
     Route: 048
  9. METOPROLOL SUCCINATE [Concomitant]
     Indication: CARDIAC DISORDER
     Route: 048

REACTIONS (1)
  - CATHETERISATION CARDIAC [None]
